FAERS Safety Report 23509232 (Version 1)
Quarter: 2024Q1

REPORT INFORMATION
  Report Type: Spontaneous
  Country: US (occurrence: None)
  Receive Date: 20240209
  Receipt Date: 20240209
  Transmission Date: 20240409
  Serious: Yes (Death, Life-Threatening, Hospitalization, Other)
  Sender: FDA-Public Use
  Company Number: None

PATIENT
  Age: 82 Year
  Sex: Female
  Weight: 50.4 kg

DRUGS (9)
  1. CAPIVASERTIB [Suspect]
     Active Substance: CAPIVASERTIB
     Indication: Hormone receptor positive HER2 negative breast cancer
     Dosage: FREQUENCY : TWICE A DAY;?
     Route: 048
     Dates: start: 20240129, end: 20240207
  2. FULVESTRANT [Concomitant]
     Active Substance: FULVESTRANT
     Dates: start: 20210910
  3. MACROBID [Concomitant]
     Active Substance: NITROFURANTOIN\NITROFURANTOIN MONOHYDRATE
     Dates: start: 20240205
  4. BACTRIM DS [Concomitant]
     Active Substance: SULFAMETHOXAZOLE\TRIMETHOPRIM
     Dates: start: 20240202, end: 20240205
  5. ASPIRIN [Concomitant]
     Active Substance: ASPIRIN
  6. CALCIUM [Concomitant]
     Active Substance: CALCIUM
  7. ENTRESTO [Concomitant]
     Active Substance: SACUBITRIL\VALSARTAN
  8. MIRAPEX [Concomitant]
     Active Substance: PRAMIPEXOLE DIHYDROCHLORIDE
  9. ZOCOR [Concomitant]
     Active Substance: SIMVASTATIN

REACTIONS (8)
  - Dizziness [None]
  - Urinary tract infection [None]
  - Hyperkalaemia [None]
  - Acute kidney injury [None]
  - Diarrhoea [None]
  - Decreased appetite [None]
  - Acute myocardial infarction [None]
  - Hypophagia [None]

NARRATIVE: CASE EVENT DATE: 20240208
